FAERS Safety Report 10267782 (Version 2)
Quarter: 2014Q2

REPORT INFORMATION
  Report Type: Spontaneous
  Country: IT (occurrence: IT)
  Receive Date: 20140630
  Receipt Date: 20140630
  Transmission Date: 20141212
  Serious: Yes (Life-Threatening, Hospitalization, Disabling)
  Sender: FDA-Public Use
  Company Number: IT-BAYER-2013-068689

PATIENT
  Age: 32 Year
  Sex: Female
  Weight: 47 kg

DRUGS (3)
  1. YASMIN [Suspect]
     Indication: ORAL CONTRACEPTION
     Dosage: DAILY DOSE 1 DF
     Route: 048
     Dates: start: 19990515, end: 20130520
  2. PRAVASTATIN [Concomitant]
     Indication: HYPERCHOLESTEROLAEMIA
     Dosage: DAILY DOSE 20 MG
     Route: 048
     Dates: start: 20120415, end: 20130520
  3. EUTIROX [Concomitant]
     Indication: THYROIDITIS ACUTE
     Dosage: DAILY DOSE 75 MG
     Route: 048
     Dates: start: 20110415, end: 20130520

REACTIONS (3)
  - Cerebral venous thrombosis [Recovered/Resolved]
  - Embolism [None]
  - Injury [None]
